FAERS Safety Report 7985519-9 (Version None)
Quarter: 2011Q4

REPORT INFORMATION
  Report Type: 
  Country: None (occurrence: None)
  Receive Date: 20111216
  Receipt Date: 20111210
  Transmission Date: 20120403
  Serious: Yes (Death)
  Sender: FDA-Public Use
  Company Number: IN-ROCHE-1022497

PATIENT
  Sex: Male
  Weight: 74 kg

DRUGS (2)
  1. ENOXAPARIN [Concomitant]
  2. METALYSE [Suspect]
     Indication: ACUTE MYOCARDIAL INFARCTION
     Route: 042
     Dates: start: 20111209, end: 20111209

REACTIONS (1)
  - CARDIOGENIC SHOCK [None]
